FAERS Safety Report 12414781 (Version 10)
Quarter: 2018Q1

REPORT INFORMATION
  Report Type: Report from Study
  Country: BR (occurrence: BR)
  Receive Date: 20160529
  Receipt Date: 20180213
  Transmission Date: 20180508
  Serious: Yes (Life-Threatening, Other)
  Sender: FDA-Public Use
  Company Number: PHHY2015BR142408

PATIENT
  Sex: Male
  Weight: 69 kg

DRUGS (4)
  1. LOSARTAN. [Concomitant]
     Active Substance: LOSARTAN
     Indication: HYPERTENSION
     Dosage: 1 DF, QD
     Route: 048
     Dates: start: 2011
  2. AFINITOR [Suspect]
     Active Substance: EVEROLIMUS
     Indication: PANCREATIC NEUROENDOCRINE TUMOUR
     Dosage: 10 MG, QD
     Route: 048
     Dates: start: 201507
  3. SANDOSTATIN LAR DEPOT [Suspect]
     Active Substance: OCTREOTIDE ACETATE
     Indication: PANCREATIC NEUROENDOCRINE TUMOUR
     Dosage: 30 MG, QMO
     Route: 030
     Dates: start: 201108
  4. SUTENT [Suspect]
     Active Substance: SUNITINIB MALATE
     Indication: METASTASES TO SPINE
     Dosage: 10 MG, QD
     Route: 048
     Dates: start: 2014

REACTIONS (45)
  - Epistaxis [Recovering/Resolving]
  - Memory impairment [Recovering/Resolving]
  - Sciatica [Unknown]
  - Aphonia [Unknown]
  - Pain in extremity [Unknown]
  - Malignant neoplasm progression [Unknown]
  - Metastases to spine [Recovering/Resolving]
  - Osteomyelitis [Unknown]
  - Yellow skin [Recovered/Resolved]
  - Dysentery [Recovered/Resolved]
  - Malaise [Unknown]
  - Musculoskeletal pain [Unknown]
  - Skin discolouration [Unknown]
  - Abdominal distension [Unknown]
  - Metastases to liver [Unknown]
  - Urine uric acid increased [Recovering/Resolving]
  - Pain [Recovering/Resolving]
  - Decreased appetite [Recovered/Resolved]
  - Expired product administered [Unknown]
  - Diarrhoea [Unknown]
  - Blood test abnormal [Unknown]
  - Blood cholesterol decreased [Unknown]
  - Therapeutic response decreased [Unknown]
  - Injection site infection [Unknown]
  - Weight increased [Recovered/Resolved]
  - Limb discomfort [Unknown]
  - Injection site swelling [Unknown]
  - Urine analysis abnormal [Recovering/Resolving]
  - Ageusia [Recovered/Resolved]
  - Nervous system disorder [Recovering/Resolving]
  - Bacterial infection [Unknown]
  - Dyschezia [Unknown]
  - Arthralgia [Unknown]
  - Metastases to lung [Unknown]
  - Stomatitis [Recovered/Resolved]
  - Nervousness [Recovering/Resolving]
  - Back pain [Unknown]
  - Gastrointestinal disorder [Unknown]
  - Spinal pain [Unknown]
  - Flatulence [Unknown]
  - Metastases to gastrointestinal tract [Unknown]
  - Weight decreased [Recovered/Resolved]
  - Eating disorder [Recovered/Resolved]
  - Vitiligo [Unknown]
  - Functional gastrointestinal disorder [Unknown]

NARRATIVE: CASE EVENT DATE: 2013
